FAERS Safety Report 22038875 (Version 5)
Quarter: 2023Q1

REPORT INFORMATION
  Report Type: Spontaneous
  Country: GB (occurrence: GB)
  Receive Date: 20230227
  Receipt Date: 20230321
  Transmission Date: 20230418
  Serious: Yes (Hospitalization, Other)
  Sender: FDA-Public Use
  Company Number: GB-MYLANLABS-2023M1020209

PATIENT
  Age: 54 Year
  Sex: Male

DRUGS (5)
  1. CLOZARIL [Suspect]
     Active Substance: CLOZAPINE
     Indication: Schizophrenia
     Dosage: UNK
     Route: 048
     Dates: start: 20021026
  2. CLOZARIL [Suspect]
     Active Substance: CLOZAPINE
     Dosage: 12.5 MILLIGRAM (OD) (START DATE: 13-FEB-2023)
     Route: 065
  3. CLOZARIL [Suspect]
     Active Substance: CLOZAPINE
     Dosage: 25 MILLIGRAM, QD (25 MG OD)
     Route: 048
  4. CLOZARIL [Suspect]
     Active Substance: CLOZAPINE
     Dosage: UNK (75MG IN THE MORNING AND 300MG AT NIGHT)
     Route: 048
  5. CLOZARIL [Suspect]
     Active Substance: CLOZAPINE
     Dosage: 50 MILLIGRAM (NOCTE)
     Route: 048

REACTIONS (19)
  - Hospitalisation [Unknown]
  - Compartment syndrome [Unknown]
  - Chronic kidney disease [Unknown]
  - Overdose [Unknown]
  - Blood calcium decreased [Unknown]
  - Blood magnesium increased [Unknown]
  - Red cell distribution width increased [Unknown]
  - Malaise [Unknown]
  - Blood phosphorus increased [Not Recovered/Not Resolved]
  - C-reactive protein increased [Unknown]
  - Protein total decreased [Unknown]
  - Blood albumin decreased [Unknown]
  - Red blood cell count decreased [Recovering/Resolving]
  - Basophil count decreased [Unknown]
  - Blood urea increased [Recovering/Resolving]
  - Blood creatinine increased [Recovering/Resolving]
  - Haematocrit decreased [Recovering/Resolving]
  - Haemoglobin decreased [Not Recovered/Not Resolved]
  - Lymphocyte count decreased [Not Recovered/Not Resolved]

NARRATIVE: CASE EVENT DATE: 20230201
